FAERS Safety Report 5306181-X (Version None)
Quarter: 2007Q2

REPORT INFORMATION
  Report Type: 
  Country: None (occurrence: None)
  Receive Date: 20070416
  Receipt Date: 20070403
  Transmission Date: 20071010
  Serious: Yes (Hospitalization)
  Sender: FDA-Public Use
  Company Number: 2007RR-06681

PATIENT
  Age: 63 Year
  Sex: Male

DRUGS (4)
  1. LISINOPRIL [Suspect]
  2. HYDROCHLOROTHIAZIDE [Suspect]
  3. QUININE SULPHATE (QUININE) [Concomitant]
  4. DOXAZOSIN METHYLSULPHONATE [Concomitant]

REACTIONS (7)
  - AORTIC ANEURYSM [None]
  - BETA HAEMOLYTIC STREPTOCOCCAL INFECTION [None]
  - CANDIDIASIS [None]
  - FISTULA [None]
  - PANCREATITIS ACUTE [None]
  - PERIPANCREATIC FLUID COLLECTION [None]
  - SUPERINFECTION [None]
